FAERS Safety Report 23624331 (Version 1)
Quarter: 2024Q1

REPORT INFORMATION
  Report Type: Spontaneous
  Country: JP (occurrence: JP)
  Receive Date: 20240312
  Receipt Date: 20240312
  Transmission Date: 20240409
  Serious: Yes (Death)
  Sender: FDA-Public Use
  Company Number: JP-JNJFOC-20240331167

PATIENT
  Sex: Male

DRUGS (3)
  1. UPTRAVI [Suspect]
     Active Substance: SELEXIPAG
     Indication: Idiopathic pulmonary fibrosis
     Route: 048
     Dates: start: 20240229, end: 20240307
  2. UPTRAVI [Suspect]
     Active Substance: SELEXIPAG
     Indication: Pulmonary hypertension
  3. ADCIRCA [Concomitant]
     Active Substance: TADALAFIL
     Indication: Idiopathic pulmonary fibrosis
     Dates: start: 20240215, end: 20240307

REACTIONS (1)
  - Idiopathic pulmonary fibrosis [Fatal]
